FAERS Safety Report 18560092 (Version 1)
Quarter: 2020Q4

REPORT INFORMATION
  Report Type: Spontaneous
  Country: DK (occurrence: DK)
  Receive Date: 20201130
  Receipt Date: 20201130
  Transmission Date: 20210114
  Serious: Yes (Hospitalization)
  Sender: FDA-Public Use
  Company Number: DK-B.I. PHARMACEUTICALS,INC./RIDGEFIELD-2020-BI-063665

PATIENT
  Age: 29 Year
  Sex: Female
  Weight: 113 kg

DRUGS (10)
  1. PANODIL [Concomitant]
     Active Substance: ACETAMINOPHEN
     Indication: PAIN
     Dosage: STRENGTH: 500 MG
     Route: 048
     Dates: start: 20190225, end: 20201019
  2. VENLAFAXIN ACTAVIS [Concomitant]
     Active Substance: VENLAFAXINE HYDROCHLORIDE
     Indication: ANXIETY
     Dosage: STRENGTH: 150 MG
     Route: 048
     Dates: start: 20170908
  3. LIPISTAD [Concomitant]
     Indication: CARDIOVASCULAR EVENT PROPHYLAXIS
     Dosage: STRENGTH: 40 MG
     Route: 048
     Dates: start: 20190308, end: 20201019
  4. IBUMETIN [Concomitant]
     Active Substance: IBUPROFEN
     Indication: ARTHRITIS
     Dosage: STRENGTH: 400 MG?DOSAGE: MAX 3 TIMES DAILY FREQUENCY:
     Route: 048
     Dates: start: 20190225, end: 20201019
  5. EMTHEXATE [METHOTREXATE] [Suspect]
     Active Substance: METHOTREXATE
     Indication: PSORIASIS
     Dosage: STRENGTH: 2.5 MG
     Route: 048
     Dates: start: 20191016, end: 20201019
  6. METFORMIN ACTAVIS [Concomitant]
     Active Substance: METFORMIN HYDROCHLORIDE
     Indication: TYPE 2 DIABETES MELLITUS
     Dosage: STRENGTH: 500 MG
     Route: 048
     Dates: start: 20190308, end: 20201019
  7. COZAAR [Concomitant]
     Active Substance: LOSARTAN POTASSIUM
     Indication: HYPERTENSION
     Dosage: STRENGTH: 50 MG
     Route: 048
     Dates: start: 20200402, end: 20201019
  8. ELOCON [Concomitant]
     Active Substance: MOMETASONE FUROATE
     Indication: PSORIASIS
     Dosage: STRENGTH: 0.1%
     Route: 003
     Dates: start: 20190318
  9. JARDIANCE [Suspect]
     Active Substance: EMPAGLIFLOZIN
     Indication: TYPE 2 DIABETES MELLITUS
     Dosage: STRENGTH: 10 MG
     Route: 048
     Dates: start: 20200716
  10. FOLIMET [Concomitant]
     Active Substance: FOLIC ACID
     Indication: VITAMIN SUPPLEMENTATION
     Dosage: STRENGTH: 5 MG
     Route: 048
     Dates: start: 20190810

REACTIONS (2)
  - Drug interaction [Unknown]
  - Liver injury [Unknown]

NARRATIVE: CASE EVENT DATE: 20201019
